FAERS Safety Report 5338451-3 (Version None)
Quarter: 2007Q2

REPORT INFORMATION
  Report Type: 
  Country: None (occurrence: None)
  Receive Date: 20070530
  Receipt Date: 20070522
  Transmission Date: 20071010
  Serious: Yes (Other)
  Sender: FDA-Public Use
  Company Number: US-GENENTECH-241560

PATIENT
  Sex: Male
  Weight: 65.4 kg

DRUGS (2)
  1. NUTROPIN [Suspect]
     Indication: GROWTH HORMONE DEFICIENCY
     Dosage: 2.9 MG, 6/WEEK
     Route: 058
  2. DEPOT LUPRON [Concomitant]
     Indication: DRUG USE FOR UNKNOWN INDICATION
     Dosage: 15 MG, Q28D
     Dates: start: 20020208

REACTIONS (1)
  - DYSPLASTIC NAEVUS SYNDROME [None]
